FAERS Safety Report 5860185-7 (Version None)
Quarter: 2008Q3

REPORT INFORMATION
  Report Type: 
  Country: None (occurrence: None)
  Receive Date: 20080827
  Receipt Date: 20080815
  Transmission Date: 20090109
  Serious: Yes (Other)
  Sender: FDA-Public Use
  Company Number: US-PFIZER INC-2008070765

PATIENT
  Age: 48 Year
  Sex: Male

DRUGS (15)
  1. PREGABALIN [Suspect]
     Indication: NEURALGIA
     Route: 048
  2. LISINOPRIL [Concomitant]
  3. BISOPROLOL FUMARATE [Concomitant]
  4. ACETYLSALICYLIC ACID SRT [Concomitant]
  5. MAGNESIUM GLUCONATE [Concomitant]
  6. LANSOPRAZOLE [Concomitant]
  7. FUROSEMIDE [Concomitant]
  8. AMITRIPTYLINE HCL [Concomitant]
  9. WARFARIN SODIUM [Concomitant]
  10. DIGOXIN [Concomitant]
  11. EPLERENONE [Concomitant]
  12. ATORVASTATIN [Concomitant]
  13. ALBUTEROL [Concomitant]
  14. MONTELUKAST SODIUM [Concomitant]
  15. DULOXETINE [Concomitant]

REACTIONS (1)
  - CARDIAC FAILURE [None]
